FAERS Safety Report 23405824 (Version 1)
Quarter: 2024Q1

REPORT INFORMATION
  Report Type: Spontaneous
  Country: US (occurrence: US)
  Receive Date: 20240116
  Receipt Date: 20240116
  Transmission Date: 20240409
  Serious: No
  Sender: FDA-Public Use
  Company Number: US-HALOZYME THERAPEUTICS, INC.-2023-SPO-TU-0008

PATIENT

DRUGS (1)
  1. TLANDO [Suspect]
     Active Substance: TESTOSTERONE UNDECANOATE
     Indication: Product used for unknown indication
     Dosage: 225 MILLIGRAM, BID
     Route: 065

REACTIONS (2)
  - Blood prolactin increased [Unknown]
  - Blood testosterone decreased [Unknown]
